FAERS Safety Report 23799318 (Version 1)
Quarter: 2024Q2

REPORT INFORMATION
  Report Type: Spontaneous
  Country: US (occurrence: None)
  Receive Date: 20240428
  Receipt Date: 20240428
  Transmission Date: 20240716
  Serious: Yes (Hospitalization)
  Sender: FDA-Public Use
  Company Number: None

PATIENT
  Age: 65 Year
  Sex: Male
  Weight: 142 kg

DRUGS (1)
  1. GADOBENATE DIMEGLUMINE [Suspect]
     Active Substance: GADOBENATE DIMEGLUMINE
     Indication: Colitis ulcerative
     Dosage: 20 ML ONCE IV
     Route: 042
     Dates: start: 20230313, end: 20230313

REACTIONS (5)
  - Anaphylactic reaction [None]
  - Pruritus [None]
  - Respiratory depression [None]
  - Tachypnoea [None]
  - Vomiting [None]

NARRATIVE: CASE EVENT DATE: 20230313
